FAERS Safety Report 10147466 (Version 1)
Quarter: 2014Q2

REPORT INFORMATION
  Report Type: Spontaneous
  Country: US (occurrence: US)
  Receive Date: 20140501
  Receipt Date: 20140501
  Transmission Date: 20141212
  Serious: Yes (Other)
  Sender: FDA-Public Use
  Company Number: US-FRI-1000066970

PATIENT
  Sex: Male

DRUGS (3)
  1. NAMENDA XR [Suspect]
     Dosage: 28 MG
  2. NAMENDA XR [Suspect]
     Dosage: 21 MG
  3. NAMENDA [Suspect]
     Dosage: 10 MG

REACTIONS (1)
  - Psychotic disorder [Unknown]
